FAERS Safety Report 9319408 (Version 1)
Quarter: 2013Q2

REPORT INFORMATION
  Report Type: Spontaneous
  Country: US (occurrence: None)
  Receive Date: 20130524
  Receipt Date: 20130524
  Transmission Date: 20140414
  Serious: Yes (Disabling)
  Sender: FDA-Public Use
  Company Number: SYM-2013-03932

PATIENT
  Age: 70 Year
  Sex: Male

DRUGS (5)
  1. FLUOROURACIL (FLUOROURACIL) (FLUOROURACIL) [Suspect]
     Indication: ADENOCARCINOMA
     Dates: start: 201103, end: 201108
  2. OXALIPLATIN (OXALIPLATIN) (OXALIPLATIN) [Suspect]
     Indication: ADENOCARCINOMA
     Dates: start: 201103, end: 201108
  3. THERAPEUTIC RADIOPHARMACEUTICALS (THERAPEUTIC RADIOPHARMACEUTICALS) [Concomitant]
  4. CAPECITABINE (CAPECITABINE) (CAPECITABINE) [Concomitant]
  5. LEUCOVORIN (FOLINIC ACID) (FOLINIC ACID) [Suspect]
     Indication: ADENOCARCINOMA
     Dates: start: 201103, end: 201108

REACTIONS (1)
  - Neuropathy peripheral [None]
